FAERS Safety Report 15728575 (Version 5)
Quarter: 2022Q3

REPORT INFORMATION
  Report Type: Report from Study
  Country: JP (occurrence: JP)
  Receive Date: 20181217
  Receipt Date: 20220927
  Transmission Date: 20221026
  Serious: Yes (Other)
  Sender: FDA-Public Use
  Company Number: JP-BAUSCH-BL-2018-029848

PATIENT
  Age: 69 Year
  Sex: Male
  Weight: 63 kg

DRUGS (10)
  1. BRODALUMAB [Suspect]
     Active Substance: BRODALUMAB
     Indication: Psoriasis
     Route: 058
     Dates: start: 20171121, end: 20171205
  2. BRODALUMAB [Suspect]
     Active Substance: BRODALUMAB
     Dosage: 1 YEAR 11 MONTHS
     Route: 058
     Dates: start: 20171219, end: 20191118
  3. BRODALUMAB [Suspect]
     Active Substance: BRODALUMAB
     Route: 058
     Dates: start: 20191126
  4. OXAROL [Concomitant]
     Active Substance: MAXACALCITOL
     Indication: Product used for unknown indication
     Dates: end: 20180117
  5. OLOPATADINE HYDROCHLORIDE OD [Concomitant]
     Indication: Product used for unknown indication
     Dates: start: 20171121, end: 20171218
  6. RIFADIN [Concomitant]
     Active Substance: RIFAMPIN
     Indication: Product used for unknown indication
     Dates: start: 20171121
  7. URSO [Concomitant]
     Active Substance: URSODIOL
     Indication: Product used for unknown indication
  8. ISCOTIN [Concomitant]
     Active Substance: ISONIAZID
     Indication: Product used for unknown indication
     Dates: end: 20171120
  9. FEBUXOSTAT [Concomitant]
     Active Substance: FEBUXOSTAT
     Indication: Product used for unknown indication
  10. CLOBETASOL PROPIONATE [Concomitant]
     Active Substance: CLOBETASOL PROPIONATE
     Indication: Product used for unknown indication
     Dates: end: 20171218

REACTIONS (1)
  - Angina pectoris [Recovered/Resolved]

NARRATIVE: CASE EVENT DATE: 20180901
